FAERS Safety Report 19769694 (Version 1)
Quarter: 2021Q3

REPORT INFORMATION
  Report Type: Spontaneous
  Country: CN (occurrence: CN)
  Receive Date: 20210831
  Receipt Date: 20210831
  Transmission Date: 20211014
  Serious: Yes (Other)
  Sender: FDA-Public Use
  Company Number: CN-009507513-2108CHN006991

PATIENT
  Age: 73 Year
  Sex: Female
  Weight: 55 kg

DRUGS (3)
  1. ORNIDAZOLE;SODIUM CHLORIDE [Suspect]
     Active Substance: ORNIDAZOLE
     Indication: LIVER ABSCESS
     Dosage: 0.5 G, Q12H
     Route: 041
     Dates: start: 20210813, end: 20210817
  2. TIENAM [Suspect]
     Active Substance: CILASTATIN SODIUM\IMIPENEM
     Indication: LIVER ABSCESS
     Dosage: 1 G, Q8H
     Dates: start: 20210808, end: 20210817
  3. SODIUM CHLORIDE. [Concomitant]
     Active Substance: SODIUM CHLORIDE
     Dosage: 250 ML, Q8H
     Route: 041
     Dates: start: 20210808, end: 20210817

REACTIONS (4)
  - Agitation [Recovered/Resolved]
  - Insomnia [Recovered/Resolved]
  - Nausea [Recovered/Resolved]
  - Vomiting [Recovered/Resolved]

NARRATIVE: CASE EVENT DATE: 20210815
